FAERS Safety Report 18266843 (Version 1)
Quarter: 2020Q3

REPORT INFORMATION
  Report Type: Report from Study
  Country: GB (occurrence: GB)
  Receive Date: 20200915
  Receipt Date: 20200915
  Transmission Date: 20201103
  Serious: Yes (Hospitalization)
  Sender: FDA-Public Use
  Company Number: PHHY2018GB029117

PATIENT
  Sex: Female

DRUGS (4)
  1. SANDOSTATIN LAR DEPOT [Suspect]
     Active Substance: OCTREOTIDE ACETATE
     Dosage: 30 MG, (EVERY 6 WEEKS)
     Route: 030
  2. SANDOSTATIN LAR DEPOT [Suspect]
     Active Substance: OCTREOTIDE ACETATE
     Dosage: 20 MG, Q4W
     Route: 030
  3. SANDOSTATIN LAR DEPOT [Suspect]
     Active Substance: OCTREOTIDE ACETATE
     Dosage: 20 MG, QMO
     Route: 030
  4. SANDOSTATIN LAR DEPOT [Suspect]
     Active Substance: OCTREOTIDE ACETATE
     Indication: NEUROENDOCRINE TUMOUR
     Dosage: 30 MG, QMO
     Route: 030

REACTIONS (18)
  - Weight decreased [Unknown]
  - Nausea [Unknown]
  - Dyspnoea [Unknown]
  - Nasopharyngitis [Unknown]
  - Thirst [Unknown]
  - Jaundice [Unknown]
  - Faecaloma [Unknown]
  - Seasonal allergy [Unknown]
  - Cough [Unknown]
  - Aphonia [Not Recovered/Not Resolved]
  - Product prescribing error [Unknown]
  - Weight gain poor [Unknown]
  - Diarrhoea [Unknown]
  - Fatigue [Unknown]
  - Frequent bowel movements [Unknown]
  - Vomiting [Unknown]
  - Malaise [Unknown]
  - Dysphonia [Not Recovered/Not Resolved]
